FAERS Safety Report 16759352 (Version 4)
Quarter: 2019Q3

REPORT INFORMATION
  Report Type: Spontaneous
  Country: JP (occurrence: JP)
  Receive Date: 20190830
  Receipt Date: 20190920
  Transmission Date: 20191005
  Serious: Yes (Other)
  Sender: FDA-Public Use
  Company Number: JP-TEVA-2019-JP-005551J

PATIENT
  Age: 84 Year
  Sex: Female

DRUGS (9)
  1. LUPRAC [Suspect]
     Active Substance: TORSEMIDE
     Dosage: 4 MILLIGRAM DAILY;
     Route: 048
     Dates: end: 20190829
  2. BIO-THREE [Concomitant]
     Active Substance: HERBALS
     Route: 048
  3. EDIROL [Concomitant]
     Active Substance: ELDECALCITOL
     Route: 048
  4. GOOFICE [Concomitant]
     Active Substance: ELOBIXIBAT
     Route: 048
  5. LETROZOLE TABLET 2.5MG ^TEVA^ [Suspect]
     Active Substance: LETROZOLE
     Indication: BREAST CANCER
     Dosage: 2.5 MILLIGRAM DAILY;
     Route: 048
     Dates: start: 20190807
  6. GOREISAN [Concomitant]
     Active Substance: HERBALS
     Route: 048
  7. FERROMIA [Concomitant]
     Active Substance: SODIUM FERROUS CITRATE
     Route: 048
  8. MASHININGAN [Concomitant]
     Active Substance: HERBALS
     Route: 048
  9. SOLANAX [Concomitant]
     Active Substance: ALPRAZOLAM
     Route: 048

REACTIONS (1)
  - Deafness [Recovering/Resolving]

NARRATIVE: CASE EVENT DATE: 20190828
